FAERS Safety Report 19763197 (Version 2)
Quarter: 2021Q4

REPORT INFORMATION
  Report Type: Report from Study
  Country: JP (occurrence: JP)
  Receive Date: 20210830
  Receipt Date: 20211028
  Transmission Date: 20220303
  Serious: No
  Sender: FDA-Public Use
  Company Number: JP-MERCK HEALTHCARE KGAA-9260657

PATIENT
  Age: 78 Year
  Sex: Male
  Weight: 66 kg

DRUGS (4)
  1. BAVENCIO [Suspect]
     Active Substance: AVELUMAB
     Indication: Transitional cell carcinoma
     Dosage: ADMINISTRATION RATE: 142 ML/HOUR.
     Route: 041
     Dates: start: 20210414, end: 20210428
  2. BAVENCIO [Suspect]
     Active Substance: AVELUMAB
     Dosage: ADMINISTRATION RATE: 283 ML/HOUR.
     Route: 041
     Dates: start: 20210512, end: 20210721
  3. ACETAMINOPHEN [Concomitant]
     Active Substance: ACETAMINOPHEN
     Indication: Premedication
     Route: 048
     Dates: start: 20210414, end: 20210428
  4. ACETAMINOPHEN [Concomitant]
     Active Substance: ACETAMINOPHEN
     Route: 041
     Dates: start: 20210512, end: 20210721

REACTIONS (1)
  - Interstitial lung disease [Recovering/Resolving]

NARRATIVE: CASE EVENT DATE: 20210804
